FAERS Safety Report 15606643 (Version 1)
Quarter: 2018Q4

REPORT INFORMATION
  Report Type: Spontaneous
  Country: US (occurrence: US)
  Receive Date: 20181112
  Receipt Date: 20181112
  Transmission Date: 20190205
  Serious: No
  Sender: FDA-Public Use
  Company Number: US-SUNOVION-2018SUN004386

PATIENT
  Sex: Female

DRUGS (2)
  1. LATUDA [Suspect]
     Active Substance: LURASIDONE HYDROCHLORIDE
     Indication: BIPOLAR DISORDER
     Dosage: UNKNOWN
     Route: 048
  2. LATUDA [Suspect]
     Active Substance: LURASIDONE HYDROCHLORIDE
     Indication: BORDERLINE PERSONALITY DISORDER

REACTIONS (5)
  - Movement disorder [Recovering/Resolving]
  - Tongue movement disturbance [Unknown]
  - Tongue disorder [Unknown]
  - Tardive dyskinesia [Recovering/Resolving]
  - Speech disorder [Unknown]
